FAERS Safety Report 23012657 (Version 3)
Quarter: 2023Q4

REPORT INFORMATION
  Report Type: Spontaneous
  Country: MY (occurrence: MY)
  Receive Date: 20230930
  Receipt Date: 20231026
  Transmission Date: 20240110
  Serious: No
  Sender: FDA-Public Use
  Company Number: MY-AMAROX PHARMA-HET2023MY02812

PATIENT
  Age: 55 Year
  Sex: Female

DRUGS (2)
  1. OMEPRAZOLE [Suspect]
     Active Substance: OMEPRAZOLE
     Indication: Gastric ulcer
     Dosage: 40 MILLIGRAM, QD
     Route: 042
     Dates: start: 20230911, end: 20230911
  2. OMEPRAZOLE [Suspect]
     Active Substance: OMEPRAZOLE
     Indication: Gastrooesophageal reflux disease

REACTIONS (3)
  - Nasopharyngitis [Recovered/Resolved]
  - Chills [Recovered/Resolved]
  - Body temperature increased [Recovered/Resolved]

NARRATIVE: CASE EVENT DATE: 20230911
